FAERS Safety Report 8877603 (Version 1)
Quarter: 2012Q4

REPORT INFORMATION
  Report Type: Spontaneous
  Country: US (occurrence: None)
  Receive Date: 20121026
  Receipt Date: 20121026
  Transmission Date: 20130627
  Serious: No
  Sender: FDA-Public Use
  Company Number: 2012-00170

PATIENT
  Age: 60 Year
  Sex: Female

DRUGS (14)
  1. ZICAM [Suspect]
     Dosage: off/ on for 1 year 5-6 years ago
  2. GLIPIZIDE [Concomitant]
  3. METFORMIN [Concomitant]
  4. FENESIN [Concomitant]
  5. SIMVASTATIN [Concomitant]
  6. LOSARTAN [Concomitant]
  7. METHOTREXATE [Concomitant]
  8. THYROID [Concomitant]
  9. FUROSEMIDE [Concomitant]
  10. ATENOLOL [Concomitant]
  11. SULLINDAC [Concomitant]
  12. AMLODIPINE [Concomitant]
  13. MEDROXYPROGRESTERONE [Concomitant]
  14. POTASSIUM [Concomitant]

REACTIONS (2)
  - Ageusia [None]
  - Hypoaesthesia oral [None]
